FAERS Safety Report 10200793 (Version 3)
Quarter: 2014Q2

REPORT INFORMATION
  Report Type: Report from Study
  Country: FR (occurrence: FR)
  Receive Date: 20140528
  Receipt Date: 20140617
  Transmission Date: 20141212
  Serious: Yes (Hospitalization)
  Sender: FDA-Public Use
  Company Number: FR-ALEXION PHARMACEUTICALS INC.-A201303005

PATIENT
  Sex: 0

DRUGS (15)
  1. ECULIZUMAB [Suspect]
     Indication: HAEMOLYTIC URAEMIC SYNDROME
     Dosage: 1200 MG, UNK
     Route: 042
     Dates: start: 20091102
  2. CARDENSIEL [Concomitant]
     Dosage: 5 MG, QD
  3. CERTICAN [Concomitant]
     Dosage: 0.5 MG 304
  4. CERTICAN [Concomitant]
     Dosage: 0.25 MG, QD
  5. INEXIUM [Concomitant]
     Dosage: 40 MG, QD
  6. ROVALCYTE [Concomitant]
     Dosage: 450 MG, QD
  7. PRAVASTATINE [Concomitant]
     Dosage: 20 MG, QD
  8. BACTRIM [Concomitant]
     Dosage: 400 MG, QD
  9. CORTANCYL [Concomitant]
     Dosage: 5 MG, QD
  10. LASILIX [Concomitant]
     Dosage: 250 MG, QD SPECIAL
  11. AMLODIPINE [Concomitant]
     Dosage: 10 MG, QD
  12. EUPRESSYL [Concomitant]
     Dosage: 60 MG, BID
  13. ZIRTEC [Concomitant]
     Dosage: 10 MG, 1/2 IF ITCHING
  14. PREVISCAN [Concomitant]
     Dosage: 20 MG, 1.25 MG TABLET DAILY
  15. XANAX [Concomitant]
     Dosage: 0.25 MG, QD

REACTIONS (4)
  - Acute pulmonary oedema [Recovered/Resolved]
  - Renal impairment [Recovered/Resolved]
  - Renal impairment [Recovered/Resolved]
  - Renal impairment [Recovered/Resolved]
